FAERS Safety Report 20057670 (Version 1)
Quarter: 2021Q4

REPORT INFORMATION
  Report Type: Spontaneous
  Country: US (occurrence: None)
  Receive Date: 20211111
  Receipt Date: 20211111
  Transmission Date: 20220303
  Serious: Yes (Hospitalization)
  Sender: FDA-Public Use
  Company Number: None

PATIENT
  Age: 36 Year
  Sex: Male
  Weight: 94.5 kg

DRUGS (2)
  1. REGEN-COV [Suspect]
     Active Substance: CASIRIVIMAB\IMDEVIMAB
     Indication: COVID-19
     Route: 042
     Dates: start: 20211007, end: 20211007
  2. ABIXABAN [Concomitant]

REACTIONS (3)
  - Back pain [None]
  - Chest pain [None]
  - Pulmonary thrombosis [None]

NARRATIVE: CASE EVENT DATE: 20211015
